FAERS Safety Report 25872965 (Version 1)
Quarter: 2025Q4

REPORT INFORMATION
  Report Type: Spontaneous
  Country: US (occurrence: US)
  Receive Date: 20251002
  Receipt Date: 20251002
  Transmission Date: 20260118
  Serious: Yes (Other)
  Sender: ROCHE
  Company Number: US-BoehringerIngelheim-2025-BI-097457

PATIENT
  Age: 51 Year
  Sex: Male

DRUGS (1)
  1. METALYSE [Suspect]
     Active Substance: TENECTEPLASE
     Indication: Product used for unknown indication
     Dosage: FORM STRENGTH: 23.5 MILLIGRAM
     Route: 042

REACTIONS (5)
  - Vitreous haemorrhage [Not Recovered/Not Resolved]
  - Retinal haemorrhage [Not Recovered/Not Resolved]
  - Retinal detachment [Recovered/Resolved]
  - Vitreoretinal traction syndrome [Not Recovered/Not Resolved]
  - Retinal vasculitis [Not Recovered/Not Resolved]
